FAERS Safety Report 7374417-X (Version None)
Quarter: 2011Q1

REPORT INFORMATION
  Report Type: 
  Country: None (occurrence: None)
  Receive Date: 20110325
  Receipt Date: 20110323
  Transmission Date: 20110831
  Serious: Yes (Hospitalization)
  Sender: FDA-Public Use
  Company Number: US-AMGEN-USASP2011015763

PATIENT
  Age: 75 Year

DRUGS (3)
  1. PREDNISONE [Concomitant]
     Dosage: 1 MG, UNK
  2. WARFARIN [Concomitant]
  3. NPLATE [Suspect]
     Indication: IDIOPATHIC THROMBOCYTOPENIC PURPURA
     Dosage: 250 A?G, UNK
     Dates: start: 20081101

REACTIONS (1)
  - CONVULSION [None]
